FAERS Safety Report 8028900-4 (Version None)
Quarter: 2012Q1

REPORT INFORMATION
  Report Type: 
  Country: None (occurrence: None)
  Receive Date: 20120106
  Receipt Date: 20111229
  Transmission Date: 20120608
  Serious: Yes (Hospitalization)
  Sender: FDA-Public Use
  Company Number: FR-GLAXOSMITHKLINE-B0772148A

PATIENT
  Sex: Male

DRUGS (4)
  1. ARIXTRA [Suspect]
     Indication: PULMONARY EMBOLISM
     Dosage: 7.5MG PER DAY
     Route: 058
     Dates: start: 20111003, end: 20111118
  2. ESCITALOPRAM OXALATE [Concomitant]
  3. PRAZEPAM [Concomitant]
  4. PREVISCAN [Suspect]
     Indication: PULMONARY EMBOLISM
     Route: 048
     Dates: end: 20111003

REACTIONS (3)
  - SUBDURAL HAEMATOMA [None]
  - ACTIVATED PARTIAL THROMBOPLASTIN TIME PROLONGED [None]
  - INCORRECT DRUG ADMINISTRATION DURATION [None]
